FAERS Safety Report 8583001 (Version 3)
Quarter: 2012Q4

REPORT INFORMATION
  Report Type: Report from Study
  Country: IT (occurrence: IT)
  Receive Date: 20120529
  Receipt Date: 20121012
  Transmission Date: 20130627
  Serious: Yes (Hospitalization)
  Sender: FDA-Public Use
  Company Number: IT-BRISTOL-MYERS SQUIBB COMPANY-16603565

PATIENT
  Age: 61 Year
  Sex: Male
  Weight: 72 kg

DRUGS (7)
  1. CISPLATIN [Suspect]
     Indication: NON-SMALL CELL LUNG CANCER
     Dosage: reg 1-day 1 every 21 days for 3 cycles
     Route: 042
     Dates: start: 20120214
  2. PEMETREXED DISODIUM [Suspect]
     Indication: NON-SMALL CELL LUNG CANCER
     Dosage: reg 1-day 1 every 21 days for 3 cycles
     Route: 042
     Dates: start: 20120214
  3. FOLIC ACID [Concomitant]
     Indication: PREMEDICATION
     Dates: start: 20120209, end: 20120313
  4. VITAMIN B12 [Concomitant]
     Indication: PREMEDICATION
     Dates: start: 20120209, end: 20120313
  5. DEXAMETHASONE [Concomitant]
     Indication: PREMEDICATION
     Dates: start: 20120213, end: 20120215
  6. NORVASC [Concomitant]
     Indication: HYPERTENSION
     Dates: start: 2006
  7. NAPRILENE [Concomitant]
     Indication: HYPERTENSION
     Dates: start: 2006

REACTIONS (1)
  - Acute abdomen [Recovered/Resolved]
